FAERS Safety Report 6508323-7 (Version None)
Quarter: 2009Q4

REPORT INFORMATION
  Report Type: 
  Country: None (occurrence: None)
  Receive Date: 20091221
  Receipt Date: 20090309
  Transmission Date: 20100525
  Serious: No
  Sender: FDA-Public Use
  Company Number: US-ASTRAZENECA-2008UW23879

PATIENT
  Age: 58 Year
  Sex: Female

DRUGS (3)
  1. CRESTOR [Suspect]
     Dosage: UNKNOWN
     Route: 048
     Dates: end: 20090101
  2. ATACAND [Suspect]
     Dosage: UNKNOWN
     Route: 048
  3. NEXIUM [Suspect]
     Dosage: UNKNOWN
     Route: 048

REACTIONS (3)
  - INSOMNIA [None]
  - MUSCLE SPASMS [None]
  - PAIN IN EXTREMITY [None]
